FAERS Safety Report 20468159 (Version 1)
Quarter: 2022Q1

REPORT INFORMATION
  Report Type: Spontaneous
  Country: US (occurrence: None)
  Receive Date: 20220211
  Receipt Date: 20220211
  Transmission Date: 20220423
  Serious: No
  Sender: FDA-Public Use
  Company Number: None

PATIENT
  Age: 39 Year
  Sex: Female
  Weight: 60.3 kg

DRUGS (2)
  1. CHOCOLATE LAXATIVE REGULAR STRENGTH, SENNOSIDES STIMULANT LAXATIVE, EQ [Suspect]
     Active Substance: SENNOSIDES
     Indication: Constipation
     Dosage: OTHER QUANTITY : 2 CHOCOLATE BAR;?FREQUENCY : AT BEDTIME;?
     Route: 048
     Dates: start: 20220211, end: 20220211
  2. BIOTIN [Concomitant]
     Active Substance: BIOTIN

REACTIONS (10)
  - Abdominal pain upper [None]
  - Diarrhoea [None]
  - Product administration error [None]
  - Product use complaint [None]
  - Product outer packaging issue [None]
  - Product packaging issue [None]
  - Product packaging confusion [None]
  - Wrong dose [None]
  - Circumstance or information capable of leading to medication error [None]
  - Accidental exposure to product by child [None]

NARRATIVE: CASE EVENT DATE: 20220211
